FAERS Safety Report 5692696-1 (Version None)
Quarter: 2008Q2

REPORT INFORMATION
  Report Type: 
  Country: None (occurrence: None)
  Receive Date: 20080401
  Receipt Date: 20080325
  Transmission Date: 20081010
  Serious: Yes (Death)
  Sender: FDA-Public Use
  Company Number: 100#08#2008-01708

PATIENT
  Age: 20 Year
  Sex: Male

DRUGS (5)
  1. CISPLATIN [Suspect]
     Indication: CHOROID PLEXUS CARCINOMA
     Dosage: 90 MG/M2; 5 COURSES
  2. CARBOPLATIN [Suspect]
     Indication: CHOROID PLEXUS CARCINOMA
     Dosage: 400 MG/M2 5COURSES
  3. VINCRISTINE [Concomitant]
  4. ETOPOSIDE [Concomitant]
  5. CYCLOPHOSPHAMIDE [Concomitant]

REACTIONS (1)
  - GLIOBLASTOMA MULTIFORME [None]
